FAERS Safety Report 19011961 (Version 3)
Quarter: 2021Q2

REPORT INFORMATION
  Report Type: Spontaneous
  Country: AT (occurrence: AT)
  Receive Date: 20210315
  Receipt Date: 20210413
  Transmission Date: 20210717
  Serious: Yes (Other)
  Sender: FDA-Public Use
  Company Number: AT-BAYER-2021-105298

PATIENT
  Age: 5 Year
  Sex: Female

DRUGS (5)
  1. IFOSFAMIDE. [Concomitant]
     Active Substance: IFOSFAMIDE
     Indication: PELVIC NEOPLASM
     Dosage: UNK
     Dates: start: 202005
  2. VINCRISTIN [Concomitant]
     Active Substance: VINCRISTINE
     Indication: PELVIC NEOPLASM
     Dosage: UNK
     Dates: start: 202005
  3. ADRIBLASTIN [Concomitant]
     Active Substance: DOXORUBICIN HYDROCHLORIDE
     Indication: PELVIC NEOPLASM
     Dosage: UNK
     Dates: start: 202005
  4. VITRAKVI [Suspect]
     Active Substance: LAROTRECTINIB
     Indication: PELVIC NEOPLASM
     Dosage: UNK
     Dates: start: 2020
  5. ACTINOMYCIN D [Concomitant]
     Active Substance: DACTINOMYCIN
     Indication: PELVIC NEOPLASM
     Dosage: UNK
     Dates: start: 202005

REACTIONS (1)
  - Pelvic neoplasm [None]
